FAERS Safety Report 7805310-3 (Version None)
Quarter: 2011Q4

REPORT INFORMATION
  Report Type: 
  Country: None (occurrence: None)
  Receive Date: 20111010
  Receipt Date: 20110921
  Transmission Date: 20120403
  Serious: No
  Sender: FDA-Public Use
  Company Number: MX-SANOFI-AVENTIS-2011SA062361

PATIENT
  Sex: Female
  Weight: 63 kg

DRUGS (2)
  1. LEFLUNOMIDE [Suspect]
     Indication: RHEUMATOID ARTHRITIS
     Route: 048
     Dates: start: 20101101, end: 20110401
  2. YASMIN [Concomitant]
     Route: 048
     Dates: end: 20110301

REACTIONS (3)
  - BREAST PAIN [None]
  - ABORTION INDUCED [None]
  - MATERNAL EXPOSURE DURING PREGNANCY [None]
